FAERS Safety Report 17678812 (Version 2)
Quarter: 2023Q2

REPORT INFORMATION
  Report Type: Spontaneous
  Country: US (occurrence: US)
  Receive Date: 20200417
  Receipt Date: 20230412
  Transmission Date: 20230722
  Serious: No
  Sender: FDA-Public Use
  Company Number: US-BIOVITRUM-2020US0477

PATIENT
  Age: 41 Year
  Sex: Male

DRUGS (3)
  1. KINERET [Suspect]
     Active Substance: ANAKINRA
     Indication: Familial amyloidosis
     Dosage: DAILY
     Route: 058
     Dates: start: 20190408
  2. KINERET [Suspect]
     Active Substance: ANAKINRA
     Indication: Muckle-Wells syndrome
  3. KINERET [Suspect]
     Active Substance: ANAKINRA
     Dosage: DAILY
     Route: 058
     Dates: start: 20190408

REACTIONS (14)
  - Musculoskeletal stiffness [Unknown]
  - Pain in extremity [Unknown]
  - Headache [Unknown]
  - Mouth ulceration [Unknown]
  - Weight increased [Unknown]
  - Off label use [Unknown]
  - Pyrexia [Unknown]
  - Muscular weakness [Unknown]
  - Tenderness [Unknown]
  - Fatigue [Unknown]
  - Dry eye [Unknown]
  - Anxiety [Unknown]
  - Insomnia [Unknown]
  - Product use issue [Unknown]
